FAERS Safety Report 4313317-6 (Version None)
Quarter: 2004Q1

REPORT INFORMATION
  Report Type: 
  Country: None (occurrence: None)
  Receive Date: 20040304
  Receipt Date: 20040220
  Transmission Date: 20041129
  Serious: Yes (Hospitalization, Other)
  Sender: FDA-Public Use
  Company Number: 2004001841

PATIENT
  Age: 67 Year
  Sex: Male
  Weight: 94.3482 kg

DRUGS (5)
  1. TIKOSYN [Suspect]
     Indication: ATRIAL FIBRILLATION
     Dosage: 750 MCG (BID), ORAL
     Route: 048
     Dates: start: 20030101
  2. WARFARIN SODIUM [Concomitant]
  3. POTASSIUM [Concomitant]
  4. EZETIMIBE [Concomitant]
  5. LORATADINE [Concomitant]

REACTIONS (9)
  - ATRIAL FIBRILLATION [None]
  - DILATATION VENTRICULAR [None]
  - DIZZINESS [None]
  - EJECTION FRACTION DECREASED [None]
  - FLUSHING [None]
  - HEART RATE INCREASED [None]
  - LOSS OF CONSCIOUSNESS [None]
  - PALLOR [None]
  - SYNCOPE [None]
